FAERS Safety Report 7329486-X (Version None)
Quarter: 2011Q1

REPORT INFORMATION
  Report Type: 
  Country: None (occurrence: None)
  Receive Date: 20110223
  Receipt Date: 20110207
  Transmission Date: 20110831
  Serious: Yes (Other)
  Sender: FDA-Public Use
  Company Number: TRP_07565_2011

PATIENT
  Age: 30 Year
  Sex: Male

DRUGS (2)
  1. RIBAVIRIN [Suspect]
     Indication: HEPATITIS C
     Dosage: DF
  2. INTERFERON ALFA-2B (INTERFERON-ALPHA-2B) [Suspect]
     Indication: HEPATITIS C
     Dosage: DF

REACTIONS (5)
  - HYPERAEMIA [None]
  - RETINAL DETACHMENT [None]
  - MACULAR DEGENERATION [None]
  - VOGT-KOYANAGI-HARADA SYNDROME [None]
  - OPTIC DISC DISORDER [None]
